FAERS Safety Report 5061688-8 (Version None)
Quarter: 2006Q3

REPORT INFORMATION
  Report Type: 
  Country: None (occurrence: None)
  Receive Date: 20060726
  Receipt Date: 20060616
  Transmission Date: 20061208
  Serious: Yes (Hospitalization)
  Sender: FDA-Public Use
  Company Number: PHFR2006GB02012

PATIENT
  Age: 48 Year
  Sex: Female
  Weight: 74 kg

DRUGS (2)
  1. LAMISIL [Suspect]
     Indication: TINEA PEDIS
     Dosage: 250 MG/DAY
     Route: 048
     Dates: start: 20060519, end: 20060603
  2. MOMETASONE FUROATE [Concomitant]
     Indication: ECZEMA
     Dosage: 0.1 %, UNK
     Route: 061
     Dates: start: 20060519, end: 20060603

REACTIONS (5)
  - BLISTER [None]
  - DERMATITIS EXFOLIATIVE [None]
  - DYSPNOEA [None]
  - JOINT SWELLING [None]
  - SKIN EXFOLIATION [None]
